FAERS Safety Report 4523425-2 (Version None)
Quarter: 2004Q4

REPORT INFORMATION
  Report Type: 
  Country: None (occurrence: None)
  Receive Date: 20041117
  Receipt Date: 20040629
  Transmission Date: 20050328
  Serious: Yes (Life-Threatening)
  Sender: FDA-Public Use
  Company Number: US-JNJFOC-20040704892

PATIENT
  Sex: Female

DRUGS (11)
  1. LEVAQUIN [Suspect]
     Indication: DRUG USE FOR UNKNOWN INDICATION
     Dosage: 500 MG, 1 IN 1 DAY, INTRAVENOUS; 250 MG, 1 IN 1 DAY, INTRAVENOUS
     Route: 042
     Dates: start: 20011017, end: 20011020
  2. LEVAQUIN [Suspect]
     Indication: DRUG USE FOR UNKNOWN INDICATION
     Dosage: 500 MG, 1 IN 1 DAY, INTRAVENOUS; 250 MG, 1 IN 1 DAY, INTRAVENOUS
     Route: 042
     Dates: start: 20011030, end: 20011105
  3. ERYTHROMYCIN ESTOLATE [Suspect]
     Indication: DRUG USE FOR UNKNOWN INDICATION
     Dosage: 125 MG, 4 IN 1 DAY
     Dates: start: 20011029, end: 20011105
  4. ALBUTEROL [Suspect]
     Indication: DRUG USE FOR UNKNOWN INDICATION
     Dates: start: 20011023
  5. ATROVENT [Concomitant]
  6. DOXYCYCLINE [Concomitant]
  7. FRAGMIN [Concomitant]
  8. LANOXIN [Concomitant]
  9. PLATINOL [Concomitant]
  10. PLAVIX [Concomitant]
  11. PREVACID (LANSOPRAZOLE) SUSPENSION [Concomitant]

REACTIONS (3)
  - ELECTROCARDIOGRAM QT PROLONGED [None]
  - TORSADE DE POINTES [None]
  - VENTRICULAR FIBRILLATION [None]
